FAERS Safety Report 14170569 (Version 1)
Quarter: 2017Q4

REPORT INFORMATION
  Report Type: Spontaneous
  Country: DO (occurrence: DO)
  Receive Date: 20171108
  Receipt Date: 20171108
  Transmission Date: 20180321
  Serious: Yes (Other)
  Sender: FDA-Public Use
  Company Number: DO-JNJFOC-20171101773

PATIENT

DRUGS (1)
  1. GOLIMUMAB [Suspect]
     Active Substance: GOLIMUMAB
     Indication: RHEUMATOID ARTHRITIS
     Route: 058

REACTIONS (7)
  - Neutropenia [Unknown]
  - Infection [Unknown]
  - Treatment failure [Unknown]
  - Pulmonary tuberculosis [Unknown]
  - Transaminases increased [Unknown]
  - Neoplasm [Unknown]
  - Dyslipidaemia [Unknown]
